FAERS Safety Report 6578188-6 (Version None)
Quarter: 2010Q1

REPORT INFORMATION
  Report Type: 
  Country: None (occurrence: None)
  Receive Date: 20100211
  Receipt Date: 20100204
  Transmission Date: 20100710
  Serious: Yes (Other)
  Sender: FDA-Public Use
  Company Number: GXKR2010DE01685

PATIENT
  Age: 49 Year
  Sex: Female

DRUGS (2)
  1. FLUVOXAMINE (NGX) [Suspect]
  2. IMIPRAMINE [Interacting]
     Indication: DEPRESSION

REACTIONS (10)
  - CARDIOTOXICITY [None]
  - DRUG INTERACTION [None]
  - DRUG LEVEL INCREASED [None]
  - ELECTROCARDIOGRAM QRS COMPLEX PROLONGED [None]
  - FALL [None]
  - ORTHOSTATIC HYPOTENSION [None]
  - RESTLESSNESS [None]
  - SEDATION [None]
  - SINUS TACHYCARDIA [None]
  - TREMOR [None]
